FAERS Safety Report 23338769 (Version 1)
Quarter: 2023Q4

REPORT INFORMATION
  Report Type: Report from Study
  Country: HN (occurrence: None)
  Receive Date: 20231226
  Receipt Date: 20231226
  Transmission Date: 20240110
  Serious: Yes (Other)
  Sender: FDA-Public Use
  Company Number: 2023A269753

PATIENT
  Sex: Female

DRUGS (5)
  1. XIGDUO XR [Suspect]
     Active Substance: DAPAGLIFLOZIN PROPANEDIOL\METFORMIN HYDROCHLORIDE
     Indication: Blood glucose fluctuation
     Dosage: 10.0MG UNKNOWN
     Route: 048
  2. DAPAGLIFLOZIN [Suspect]
     Active Substance: DAPAGLIFLOZIN
     Indication: Blood glucose abnormal
     Dosage: 10.0MG UNKNOWN
     Route: 048
  3. INSULIN NOS [Concomitant]
     Active Substance: INSULIN NOS
     Route: 058
  4. ASPIRIN\ATORVASTATIN\METOPROLOL\RAMIPRIL [Concomitant]
     Active Substance: ASPIRIN\ATORVASTATIN\METOPROLOL\RAMIPRIL
     Route: 048
  5. AMLODIPINE\VALSARTAN [Concomitant]
     Active Substance: AMLODIPINE\VALSARTAN
     Route: 048

REACTIONS (5)
  - Pterygium [Not Recovered/Not Resolved]
  - Dizziness [Not Recovered/Not Resolved]
  - Depression [Not Recovered/Not Resolved]
  - Abdominal discomfort [Not Recovered/Not Resolved]
  - Nausea [Not Recovered/Not Resolved]
